FAERS Safety Report 14660491 (Version 1)
Quarter: 2018Q1

REPORT INFORMATION
  Report Type: Spontaneous
  Country: US (occurrence: US)
  Receive Date: 20180320
  Receipt Date: 20180320
  Transmission Date: 20180509
  Serious: Yes (Other)
  Sender: FDA-Public Use
  Company Number: US-GLAXOSMITHKLINE-US2018046717

PATIENT
  Sex: Female

DRUGS (2)
  1. VENTOLIN HFA [Suspect]
     Active Substance: ALBUTEROL SULFATE
     Indication: ASTHMA
  2. VENTOLIN HFA [Suspect]
     Active Substance: ALBUTEROL SULFATE
     Indication: CHRONIC OBSTRUCTIVE PULMONARY DISEASE
     Dosage: 2 PUFF(S), PRN
     Route: 055
     Dates: start: 2003

REACTIONS (7)
  - Rheumatoid arthritis [Unknown]
  - Fibromyalgia [Unknown]
  - Drug ineffective for unapproved indication [Unknown]
  - Cervical vertebral fracture [Recovered/Resolved]
  - Ill-defined disorder [Unknown]
  - Product use in unapproved indication [Unknown]
  - Diabetes mellitus [Unknown]
